FAERS Safety Report 21568719 (Version 1)
Quarter: 2022Q4

REPORT INFORMATION
  Report Type: Report from Study
  Country: US (occurrence: US)
  Receive Date: 20221108
  Receipt Date: 20221108
  Transmission Date: 20230112
  Serious: No
  Sender: FDA-Public Use
  Company Number: US-ABBVIE-4136093

PATIENT
  Sex: Male

DRUGS (3)
  1. HUMIRA [Suspect]
     Active Substance: ADALIMUMAB
     Indication: Colitis ulcerative
     Dosage: DAY 29?FORM STRENGTH: 40 MG
     Route: 058
     Dates: start: 20211027
  2. HUMIRA [Suspect]
     Active Substance: ADALIMUMAB
     Dosage: DAY 1?FORM STRENGTH: 40 MG
     Route: 058
     Dates: start: 20210929, end: 20210929
  3. HUMIRA [Suspect]
     Active Substance: ADALIMUMAB
     Dosage: DAY 15?FORM STRENGTH: 40 MG
     Route: 058
     Dates: start: 20211013, end: 20211013

REACTIONS (1)
  - Injection site pain [Unknown]
